FAERS Safety Report 13155834 (Version 1)
Quarter: 2017Q1

REPORT INFORMATION
  Report Type: Spontaneous
  Country: US (occurrence: US)
  Receive Date: 20170126
  Receipt Date: 20170126
  Transmission Date: 20170428
  Serious: No
  Sender: FDA-Public Use
  Company Number: US-ROCHE-1458025

PATIENT
  Age: 70 Year
  Sex: Female

DRUGS (5)
  1. VALIUM [Suspect]
     Active Substance: DIAZEPAM
     Indication: AGORAPHOBIA
     Route: 065
  2. LUCENTIS [Suspect]
     Active Substance: RANIBIZUMAB
     Indication: RETINAL VEIN OCCLUSION
     Route: 065
     Dates: start: 20140404, end: 2014
  3. KLONOPIN [Suspect]
     Active Substance: CLONAZEPAM
     Indication: AGORAPHOBIA
     Route: 065
     Dates: start: 2014, end: 2014
  4. LEVOTHYROXIN [Concomitant]
     Active Substance: LEVOTHYROXINE
     Indication: HYPOTHYROIDISM
     Route: 065
  5. VALIUM [Suspect]
     Active Substance: DIAZEPAM
     Indication: PANIC ATTACK

REACTIONS (5)
  - Drug ineffective [Not Recovered/Not Resolved]
  - Visual impairment [Not Recovered/Not Resolved]
  - Hypersomnia [Recovered/Resolved]
  - Eye swelling [Recovered/Resolved]
  - Urticaria [Not Recovered/Not Resolved]
